FAERS Safety Report 14992455 (Version 4)
Quarter: 2019Q1

REPORT INFORMATION
  Report Type: Other
  Country: IT (occurrence: IT)
  Receive Date: 20180609
  Receipt Date: 20190222
  Transmission Date: 20190417
  Serious: Yes (Other)
  Sender: FDA-Public Use
  Company Number: IT-MACLEODS PHARMACEUTICALS US LTD-MAC2018014224

PATIENT

DRUGS (9)
  1. INFLUENZA VACCINE [Interacting]
     Active Substance: INFLUENZA VIRUS VACCINE
     Indication: IMMUNISATION
     Dosage: SUSPENSION FOR INJECTION,TIME INTERVAL BETWEEN BEGINNING OF DRUG ADMIN AND START
     Route: 065
  2. INFLUENZA VACCINE [Interacting]
     Active Substance: INFLUENZA VIRUS VACCINE
     Dosage: TIME INTERVAL BETWEEN BEGINNING OF DRUG ADMINISTRATION AND START OF REACTION/TIME, INJECTION
     Route: 065
  3. CLOPIDOGREL [Suspect]
     Active Substance: CLOPIDOGREL BISULFATE
     Indication: PRODUCT USED FOR UNKNOWN INDICATION
     Dosage: UNK
     Route: 065
  4. ASPIRIN. [Interacting]
     Active Substance: ASPIRIN
     Indication: PRODUCT USED FOR UNKNOWN INDICATION
     Dosage: UNK, 008
     Route: 065
  5. WARFARIN [Interacting]
     Active Substance: WARFARIN
     Indication: PRODUCT USED FOR UNKNOWN INDICATION
     Dosage: UNK, REGIMEN I
     Route: 065
  6. INFLUENZA VACCINE [Interacting]
     Active Substance: INFLUENZA VIRUS VACCINE
     Indication: INFLUENZA IMMUNISATION
     Dosage: INJECTION ,TIME INTERVAL BETWEEN BEGINNING OF DRUG ADMIN AND START
     Route: 065
  7. INFLUENZA VACCINE [Interacting]
     Active Substance: INFLUENZA VIRUS VACCINE
     Dosage: TIME INTERVAL BETWEEN BEGINNING OF DRUG ADMINISTRATION AND START OF REACTION/TIME
     Route: 065
  8. INFLUENZA VACCINE [Interacting]
     Active Substance: INFLUENZA VIRUS VACCINE
     Dosage: TIME INTERVAL BETWEEN BEGINNING OF DRUG ADMINISTRATION AND START OF REACTION/TIME
     Route: 065
  9. ASPIRIN. [Interacting]
     Active Substance: ASPIRIN
     Dosage: UNK
     Route: 065

REACTIONS (9)
  - International normalised ratio increased [Recovered/Resolved]
  - Mouth haemorrhage [Recovered/Resolved]
  - Labelled drug-disease interaction medication error [Unknown]
  - Drug interaction [Unknown]
  - Ear haemorrhage [Recovered/Resolved]
  - Epistaxis [Unknown]
  - Platelet count decreased [Recovered/Resolved]
  - Injection site haemorrhage [Recovered/Resolved]
  - Product administration error [Unknown]
